FAERS Safety Report 7472270-7 (Version None)
Quarter: 2011Q2

REPORT INFORMATION
  Report Type: 
  Country: None (occurrence: None)
  Receive Date: 20110502
  Receipt Date: 20110414
  Transmission Date: 20111010
  Serious: Yes (Hospitalization)
  Sender: FDA-Public Use
  Company Number: 2011AT000137

PATIENT
  Sex: Female

DRUGS (1)
  1. EDEX [Suspect]

REACTIONS (1)
  - PREGNANCY OF PARTNER [None]
